FAERS Safety Report 15160050 (Version 1)
Quarter: 2018Q3

REPORT INFORMATION
  Report Type: Report from Study
  Country: FR (occurrence: FR)
  Receive Date: 20180718
  Receipt Date: 20180718
  Transmission Date: 20181010
  Serious: Yes (Death, Hospitalization, Other)
  Sender: FDA-Public Use
  Company Number: FR-SAKK-2018SA183478AA

PATIENT
  Age: 72 Year
  Sex: Male
  Weight: 87 kg

DRUGS (6)
  1. ATORVASTATIN [Concomitant]
     Active Substance: ATORVASTATIN
     Indication: HYPERTENSION
     Dosage: UNK
     Route: 048
  2. CABAZITAXEL [Suspect]
     Active Substance: CABAZITAXEL
     Dosage: 40 MG, QCY
     Route: 042
     Dates: start: 20170801, end: 20170801
  3. RAMIPRIL. [Concomitant]
     Active Substance: RAMIPRIL
     Indication: HYPERTENSION
     Dosage: UNK
     Route: 048
  4. KARDEGIC [Concomitant]
     Active Substance: ASPIRIN DL-LYSINE
     Indication: HYPERTENSION
     Dosage: UNK
     Route: 048
  5. CABAZITAXEL [Suspect]
     Active Substance: CABAZITAXEL
     Dosage: 40 MG
     Route: 042
     Dates: start: 20170530, end: 20170530
  6. DECAPEPTYL (ACETATE) [Suspect]
     Active Substance: TRIPTORELIN ACETATE
     Dosage: 11.25 MG
     Route: 058
     Dates: start: 20170418

REACTIONS (2)
  - Cardiopulmonary failure [Fatal]
  - Hepatic lesion [Unknown]

NARRATIVE: CASE EVENT DATE: 20180525
